FAERS Safety Report 6982448-4 (Version None)
Quarter: 2010Q3

REPORT INFORMATION
  Report Type: 
  Country: None (occurrence: None)
  Receive Date: 20100914
  Receipt Date: 20100128
  Transmission Date: 20110219
  Serious: No
  Sender: FDA-Public Use
  Company Number: US-PFIZER INC-2010012367

PATIENT
  Age: 23 Year
  Sex: Female
  Weight: 55.34 kg

DRUGS (7)
  1. LYRICA [Suspect]
     Indication: PAIN
     Dosage: 50 MG, 1X/DAY
     Route: 048
     Dates: start: 20091112, end: 20091124
  2. LYRICA [Suspect]
     Dosage: 100MG DAILY
     Route: 048
     Dates: start: 20091125, end: 20091231
  3. CLARINEX [Concomitant]
     Indication: ASTHMA
     Dosage: UNK
     Route: 048
  4. LEXAPRO [Concomitant]
     Indication: DEPRESSION
     Dosage: 10 MG, 1X/DAY
     Route: 048
  5. NAPROXEN [Concomitant]
     Dosage: 440 MG, DAILY OR 2X/DAY
     Route: 048
  6. VALIUM [Concomitant]
     Indication: MUSCLE SPASMS
     Dosage: UNK
     Route: 048
  7. TYLENOL [Concomitant]
     Indication: INJURY
     Dosage: 30 MG, UNK
     Route: 048

REACTIONS (2)
  - VISION BLURRED [None]
  - VISUAL IMPAIRMENT [None]
